FAERS Safety Report 9109988 (Version 5)
Quarter: 2013Q3

REPORT INFORMATION
  Report Type: Spontaneous
  Country: US (occurrence: US)
  Receive Date: 20130222
  Receipt Date: 20130711
  Transmission Date: 20140515
  Serious: No
  Sender: FDA-Public Use
  Company Number: US-009507513-1302USA009873

PATIENT
  Age: 49 Year
  Sex: Female
  Weight: 56.69 kg

DRUGS (3)
  1. PEGINTRON [Suspect]
     Indication: HEPATITIS C
     Dosage: UNK, REDIPEN
     Route: 058
     Dates: start: 20130215, end: 20130429
  2. REBETOL [Suspect]
     Indication: HEPATITIS C
     Dosage: UNK
     Route: 048
     Dates: start: 20130215, end: 20130429
  3. VICTRELIS [Suspect]
     Indication: HEPATITIS C
     Dosage: UNK
     Route: 048
     Dates: start: 20130315, end: 20130429

REACTIONS (31)
  - Diarrhoea [Unknown]
  - Connective tissue disorder [Unknown]
  - Musculoskeletal disorder [Unknown]
  - Urinary tract infection [Unknown]
  - Depression [Unknown]
  - Diarrhoea [Unknown]
  - Hyperglycaemia [Unknown]
  - Fatigue [Unknown]
  - Injection site reaction [Unknown]
  - Weight decreased [Unknown]
  - Decreased appetite [Unknown]
  - Urinary tract infection [Unknown]
  - Oral pain [Unknown]
  - Urinary tract infection [Unknown]
  - Fatigue [Unknown]
  - Malaise [Unknown]
  - Somnolence [Unknown]
  - Oral pain [Unknown]
  - Depression [Unknown]
  - Nausea [Unknown]
  - Vomiting [Unknown]
  - Weight decreased [Unknown]
  - Somnolence [Unknown]
  - Fatigue [Unknown]
  - Depressed level of consciousness [Unknown]
  - Dyspnoea [Unknown]
  - Abdominal pain [Unknown]
  - Depression [Unknown]
  - Fatigue [Unknown]
  - Alopecia [Unknown]
  - Malaise [Unknown]
